FAERS Safety Report 23592095 (Version 1)
Quarter: 2024Q1

REPORT INFORMATION
  Report Type: Spontaneous
  Country: DK (occurrence: DK)
  Receive Date: 20240304
  Receipt Date: 20240304
  Transmission Date: 20240410
  Serious: Yes (Other)
  Sender: FDA-Public Use
  Company Number: DK-Merck Healthcare KGaA-2024010506

PATIENT
  Age: 50 Year
  Sex: Female

DRUGS (2)
  1. MAVENCLAD [Suspect]
     Active Substance: CLADRIBINE
     Indication: Multiple sclerosis
     Dosage: THERAPY
     Dates: start: 2020
  2. MEDROL [Concomitant]
     Active Substance: METHYLPREDNISOLONE
     Indication: Acute disseminated encephalomyelitis

REACTIONS (1)
  - Multiple sclerosis relapse [Recovering/Resolving]
